FAERS Safety Report 15331806 (Version 1)
Quarter: 2018Q3

REPORT INFORMATION
  Report Type: Report from Study
  Country: US (occurrence: US)
  Receive Date: 20180829
  Receipt Date: 20180829
  Transmission Date: 20181010
  Serious: Yes (Other)
  Sender: FDA-Public Use
  Company Number: PHHY2018US083203

PATIENT
  Age: 11 Year
  Sex: Male

DRUGS (2)
  1. AFINITOR [Suspect]
     Active Substance: EVEROLIMUS
     Indication: ASTROCYTOMA, LOW GRADE
     Dosage: 10 MG, UNK
     Route: 048
     Dates: start: 20141220, end: 201803
  2. AFINITOR [Suspect]
     Active Substance: EVEROLIMUS
     Dosage: 5 MG, QD
     Route: 048
     Dates: start: 2018

REACTIONS (2)
  - Astrocytoma, low grade [Unknown]
  - Stomatitis [Unknown]

NARRATIVE: CASE EVENT DATE: 201806
